FAERS Safety Report 7593329-X (Version None)
Quarter: 2011Q3

REPORT INFORMATION
  Report Type: 
  Country: None (occurrence: None)
  Receive Date: 20110706
  Receipt Date: 20110629
  Transmission Date: 20111222
  Serious: Yes (Hospitalization, Other)
  Sender: FDA-Public Use
  Company Number: GR-PFIZER INC-2011130916

PATIENT
  Age: 5 Year
  Sex: Female

DRUGS (1)
  1. VORICONAZOLE [Suspect]
     Indication: PROPHYLAXIS
     Dosage: UNK
     Route: 042
     Dates: start: 20110101, end: 20110101

REACTIONS (1)
  - GASTROINTESTINAL HAEMORRHAGE [None]
